FAERS Safety Report 7109752-3 (Version None)
Quarter: 2010Q4

REPORT INFORMATION
  Report Type: 
  Country: None (occurrence: None)
  Receive Date: 20101118
  Receipt Date: 20101106
  Transmission Date: 20110411
  Serious: Yes (Other)
  Sender: FDA-Public Use
  Company Number: US-PFIZER INC-2010135455

PATIENT
  Sex: Female
  Weight: 90.703 kg

DRUGS (13)
  1. CHANTIX [Suspect]
     Indication: SMOKING CESSATION THERAPY
     Dosage: 0.5 MG, 1X/DAY
     Route: 048
     Dates: start: 20101020
  2. CHANTIX [Suspect]
     Dosage: 1 MG, 2X/DAY
     Route: 048
     Dates: end: 20101105
  3. DIAZEPAM [Concomitant]
     Indication: ANXIETY
     Dosage: 5 MG, 1X/DAY
     Dates: start: 20100101
  4. PROMETHAZINE [Concomitant]
     Dosage: UNK
  5. VICODIN [Concomitant]
     Dosage: UNK
     Route: 048
  6. FLEXERIL [Concomitant]
     Indication: MUSCLE SPASMS
     Dosage: 10 MG, 1X/DAY
     Route: 048
  7. FLEXERIL [Concomitant]
     Indication: ANXIETY
  8. FLEXERIL [Concomitant]
     Indication: PANIC ATTACK
  9. PREVACID [Concomitant]
     Indication: GASTROOESOPHAGEAL REFLUX DISEASE
     Dosage: 15 MG, UNK
  10. IBUPROFEN [Concomitant]
     Indication: BACK PAIN
     Dosage: 600 MG, 1X/DAY
  11. IBUPROFEN [Concomitant]
     Indication: MENSTRUAL CYCLE MANAGEMENT
  12. PREMARIN [Concomitant]
     Dosage: 0.23 MG, 1X/DAY
  13. VITAMINS [Concomitant]
     Dosage: UNK
     Route: 048

REACTIONS (4)
  - DEHYDRATION [None]
  - DIPLOPIA [None]
  - DISORIENTATION [None]
  - HEART RATE INCREASED [None]
